FAERS Safety Report 7039646-3 (Version None)
Quarter: 2010Q4

REPORT INFORMATION
  Report Type: 
  Country: None (occurrence: None)
  Receive Date: 20101012
  Receipt Date: 20101004
  Transmission Date: 20110411
  Serious: Yes (Other)
  Sender: FDA-Public Use
  Company Number: A0885752A

PATIENT
  Sex: Female
  Weight: 80 kg

DRUGS (6)
  1. AVANDIA [Suspect]
     Dosage: 4MG TWICE PER DAY
     Route: 065
     Dates: start: 20060101, end: 20100930
  2. JANUVIA [Concomitant]
     Dosage: 1TAB PER DAY
     Dates: start: 20060101
  3. ATACAND [Concomitant]
     Dosage: 1TAB PER DAY
     Dates: start: 20090101
  4. CALTREN [Concomitant]
     Dosage: 1TAB THREE TIMES PER DAY
     Dates: start: 20100701
  5. NATRILIX [Concomitant]
     Dosage: 1TAB PER DAY
     Dates: start: 20070101
  6. SYNTHROID [Concomitant]
     Dosage: 1TAB PER DAY
     Dates: start: 20060101

REACTIONS (4)
  - ARTERIOSPASM CORONARY [None]
  - BLOOD PRESSURE INCREASED [None]
  - DYSPNOEA [None]
  - FATIGUE [None]
